FAERS Safety Report 9353951 (Version 1)
Quarter: 2013Q2

REPORT INFORMATION
  Report Type: Spontaneous
  Country: US (occurrence: US)
  Receive Date: 20130618
  Receipt Date: 20130618
  Transmission Date: 20140414
  Serious: Yes (Other)
  Sender: FDA-Public Use
  Company Number: US-BAYER-2013-075096

PATIENT
  Age: 30 Year
  Sex: Female

DRUGS (4)
  1. YAZ [Suspect]
     Dosage: UNK
     Dates: start: 20091101, end: 20100125
  2. YASMIN [Suspect]
     Dosage: UNK
     Dates: start: 20091101, end: 20100125
  3. OCELLA [Suspect]
     Dosage: UNK
     Dates: start: 20091101, end: 20100125
  4. GIANVI [Suspect]
     Dosage: UNK
     Dates: start: 20091101, end: 20100125

REACTIONS (3)
  - Venous thrombosis [None]
  - Injury [None]
  - Pain [None]
